FAERS Safety Report 9689231 (Version 1)
Quarter: 2013Q4

REPORT INFORMATION
  Report Type: Spontaneous
  Country: US (occurrence: US)
  Receive Date: 20131114
  Receipt Date: 20131114
  Transmission Date: 20140711
  Serious: Yes (Other)
  Sender: FDA-Public Use
  Company Number: US-TEVA-443515USA

PATIENT
  Sex: Female

DRUGS (6)
  1. TREANDA [Suspect]
     Indication: CHRONIC LYMPHOCYTIC LEUKAEMIA
     Route: 042
  2. TREANDA [Suspect]
     Indication: DIFFUSE LARGE B-CELL LYMPHOMA
  3. REVLIMID [Suspect]
     Indication: DIFFUSE LARGE B-CELL LYMPHOMA
     Dosage: 15 MILLIGRAM DAILY;
     Route: 048
     Dates: start: 201305
  4. ALEVE [Concomitant]
     Indication: PRODUCT USED FOR UNKNOWN INDICATION
  5. COUMADIN [Concomitant]
     Indication: PRODUCT USED FOR UNKNOWN INDICATION
  6. CIPROFLOXACIN [Concomitant]
     Indication: PRODUCT USED FOR UNKNOWN INDICATION
     Dosage: 1000 MILLIGRAM DAILY;
     Route: 048

REACTIONS (5)
  - Pancytopenia [Unknown]
  - Drug intolerance [Unknown]
  - Performance status decreased [Unknown]
  - Infection [Unknown]
  - Disease recurrence [Unknown]
